FAERS Safety Report 5833474-X (Version None)
Quarter: 2008Q3

REPORT INFORMATION
  Report Type: 
  Country: None (occurrence: None)
  Receive Date: 20080804
  Receipt Date: 20080804
  Transmission Date: 20090109
  Serious: Yes (Other)
  Sender: FDA-Public Use
  Company Number: None

PATIENT
  Age: 58 Year
  Sex: Male
  Weight: 76.2043 kg

DRUGS (1)
  1. NALTREXONE HYDROCHLORIDE [Suspect]
     Indication: ALCOHOL USE
     Dosage: 50MG ONE/DAY PO
     Route: 048
     Dates: start: 20080401, end: 20080803

REACTIONS (3)
  - ALCOHOL USE [None]
  - ANXIETY [None]
  - NERVOUSNESS [None]
